FAERS Safety Report 4980302-0 (Version None)
Quarter: 2006Q2

REPORT INFORMATION
  Report Type: 
  Country: None (occurrence: None)
  Receive Date: 20060424
  Receipt Date: 20060414
  Transmission Date: 20061013
  Serious: Yes (Hospitalization)
  Sender: FDA-Public Use
  Company Number: IT-ABBOTT-06P-083-0330953-00

PATIENT
  Sex: Male

DRUGS (5)
  1. DEPAKENE [Suspect]
     Indication: EPILEPSY
     Route: 048
     Dates: start: 20021218
  2. DEPAKENE [Suspect]
     Indication: MYOCLONIC EPILEPSY
  3. DEPAKENE [Suspect]
  4. DEPAKENE [Suspect]
     Indication: SIMPLE PARTIAL SEIZURES
  5. TOPIRAMATE [Suspect]
     Indication: EPILEPSY
     Route: 048
     Dates: start: 20051001

REACTIONS (1)
  - PHARYNGOTONSILLITIS [None]
